FAERS Safety Report 7902244-0 (Version None)
Quarter: 2011Q4

REPORT INFORMATION
  Report Type: 
  Country: None (occurrence: None)
  Receive Date: 20111108
  Receipt Date: 20111031
  Transmission Date: 20120403
  Serious: Yes (Hospitalization, Other)
  Sender: FDA-Public Use
  Company Number: US-ELI_LILLY_AND_COMPANY-US200812001336

PATIENT
  Sex: Male

DRUGS (1)
  1. HUMALOG [Suspect]
     Dosage: UNK, UNK

REACTIONS (16)
  - RENAL DISORDER [None]
  - MACULAR FIBROSIS [None]
  - HEART TRANSPLANT [None]
  - EYE DISORDER [None]
  - CARDIAC DISORDER [None]
  - INTRAOCULAR PRESSURE INCREASED [None]
  - HOSPITALISATION [None]
  - EYE HAEMORRHAGE [None]
  - BLOOD GLUCOSE INCREASED [None]
  - RENAL TRANSPLANT [None]
  - CATARACT [None]
  - DIALYSIS [None]
  - RETINOPATHY [None]
  - RETINAL TEAR [None]
  - GLAUCOMA [None]
  - VISUAL ACUITY REDUCED [None]
